FAERS Safety Report 9032467 (Version 3)
Quarter: 2013Q1

REPORT INFORMATION
  Report Type: Spontaneous
  Country: DE (occurrence: DE)
  Receive Date: 20130125
  Receipt Date: 20130215
  Transmission Date: 20140127
  Serious: Yes (Other)
  Sender: FDA-Public Use
  Company Number: DE-GLAXOSMITHKLINE-D0078521A

PATIENT
  Sex: Male

DRUGS (1)
  1. DUODART [Suspect]
     Indication: PROSTATOMEGALY
     Dosage: .9MG PER DAY
     Route: 048
     Dates: start: 20120915, end: 20121101

REACTIONS (3)
  - Stent placement [Unknown]
  - Cardiac disorder [Recovered/Resolved]
  - Non-cardiac chest pain [Recovered/Resolved]
